FAERS Safety Report 15306687 (Version 2)
Quarter: 2018Q3

REPORT INFORMATION
  Report Type: Spontaneous
  Country: FR (occurrence: FR)
  Receive Date: 20180822
  Receipt Date: 20180828
  Transmission Date: 20181010
  Serious: Yes (Other)
  Sender: FDA-Public Use
  Company Number: FR-FERRINGPH-2018FE04571

PATIENT

DRUGS (2)
  1. EXACYL [Concomitant]
     Active Substance: TRANEXAMIC ACID
     Dosage: 3 DF, DAILY
     Route: 048
     Dates: start: 20180221, end: 20180630
  2. OCTIM [Suspect]
     Active Substance: DESMOPRESSIN ACETATE
     Indication: HAEMORRHAGE PROPHYLAXIS
     Dosage: 1 DF DAILY IN EACH NOSTRIL
     Route: 045
     Dates: start: 20180621, end: 20180622

REACTIONS (2)
  - Anxiety [Recovered/Resolved]
  - Tetany [Recovered/Resolved]

NARRATIVE: CASE EVENT DATE: 20180621
